FAERS Safety Report 20802970 (Version 3)
Quarter: 2022Q2

REPORT INFORMATION
  Report Type: Report from Study
  Country: DE (occurrence: DE)
  Receive Date: 20220509
  Receipt Date: 20220509
  Transmission Date: 20220721
  Serious: Yes (Other)
  Sender: FDA-Public Use
  Company Number: DE-BRISTOL-MYERS SQUIBB COMPANY-2022-010041

PATIENT
  Age: 64 Year
  Sex: Male
  Weight: 87 kg

DRUGS (18)
  1. LENALIDOMIDE [Suspect]
     Active Substance: LENALIDOMIDE
     Indication: Plasma cell myeloma
     Dosage: LENALIDOMIDE P.O. 25 MG ONCE DAILY ON DAY 1 TO 21 OF A 28 DAY CYCLE?1 TO 3
     Route: 048
     Dates: start: 20110510, end: 20110801
  2. DEXAMETHASONE [Suspect]
     Active Substance: DEXAMETHASONE
     Indication: Plasma cell myeloma
     Dosage: DEXAMETHASONE P.O. 40 MG ONCE DAILY ON DAY 1, 8, 15 AND 22 OF A 28-DAY CYCLE,1 TO 3 CYCLES
     Route: 048
     Dates: start: 20110510, end: 20120121
  3. ETOPOSIDE [Suspect]
     Active Substance: ETOPOSIDE
     Indication: Haematopoietic stem cell mobilisation
     Route: 042
     Dates: start: 20110817, end: 20110819
  4. MELPHALAN [Suspect]
     Active Substance: MELPHALAN
     Indication: Plasma cell myeloma
     Route: 042
     Dates: start: 20210920, end: 20210921
  5. CYCLOPHOSPHAMIDE [Suspect]
     Active Substance: CYCLOPHOSPHAMIDE
     Indication: Haematopoietic stem cell mobilisation
     Route: 042
     Dates: start: 20110817, end: 20110818
  6. LENOGRASTIM [Concomitant]
     Active Substance: LENOGRASTIM
     Indication: Haematopoietic stem cell mobilisation
     Route: 058
     Dates: start: 20110821, end: 20110830
  7. NEOTRI [TRIAMTERENE;XIPAMIDE] [Concomitant]
     Indication: Hypertension
     Dosage: 10 MG IN TOTAL
     Route: 048
     Dates: start: 20110325, end: 20110704
  8. PENTAERYTHRITOL TETRANITRATE [Concomitant]
     Active Substance: PENTAERYTHRITOL TETRANITRATE
     Indication: Prophylaxis
     Route: 048
     Dates: start: 20110325, end: 20110704
  9. NOVALGIN (METAMIZOLE SODIUM) [Concomitant]
     Active Substance: METAMIZOLE SODIUM
     Indication: Bone pain
     Dosage: FORMULATION: DROPS OROMUCOSAL
     Route: 048
     Dates: start: 20110509, end: 20110704
  10. MICARDIS [Concomitant]
     Active Substance: TELMISARTAN
     Indication: Hypertension
     Route: 048
     Dates: start: 20030708, end: 201201
  11. LORATADINE [Concomitant]
     Active Substance: LORATADINE
     Indication: Infection prophylaxis
     Route: 048
     Dates: start: 201201, end: 201201
  12. OXAZEPAM [Concomitant]
     Active Substance: OXAZEPAM
     Indication: Sleep disorder
     Route: 048
     Dates: start: 201201, end: 201201
  13. OMEPRAZOLE [Concomitant]
     Active Substance: OMEPRAZOLE
     Indication: Gastrooesophageal reflux disease
     Route: 048
     Dates: start: 2000
  14. DILTIAZEM [Concomitant]
     Active Substance: DILTIAZEM
     Indication: Hypertension
     Route: 048
     Dates: start: 20110325
  15. ASPIRIN [Concomitant]
     Active Substance: ASPIRIN
     Indication: Thrombosis prophylaxis
     Route: 048
     Dates: start: 20110509
  16. ALBUTEROL [Concomitant]
     Active Substance: ALBUTEROL
     Indication: Chronic obstructive pulmonary disease
     Dosage: 1 DOSAGE FORM TOTAL DAILY
     Route: 048
     Dates: start: 201201
  17. SULFAMETHOXAZOLE\TRIMETHOPRIM [Concomitant]
     Active Substance: SULFAMETHOXAZOLE\TRIMETHOPRIM
     Indication: Infection prophylaxis
     Route: 048
     Dates: start: 201209
  18. ACYCLOVIR [Concomitant]
     Active Substance: ACYCLOVIR
     Indication: Infection prophylaxis
     Route: 048
     Dates: start: 2012

REACTIONS (1)
  - Malignant melanoma in situ [Recovered/Resolved]

NARRATIVE: CASE EVENT DATE: 20120116
